FAERS Safety Report 23124950 (Version 1)
Quarter: 2023Q4

REPORT INFORMATION
  Report Type: Spontaneous
  Country: US (occurrence: None)
  Receive Date: 20231030
  Receipt Date: 20231030
  Transmission Date: 20240110
  Serious: Yes (Hospitalization)
  Sender: FDA-Public Use
  Company Number: None

PATIENT
  Age: 24 Year
  Sex: Male
  Weight: 51.5 kg

DRUGS (3)
  1. BLEOMYCIN A5 [Suspect]
     Active Substance: BLEOMYCIN A5
     Dates: end: 20220629
  2. CISPLATIN [Suspect]
     Active Substance: CISPLATIN
     Dates: end: 20220626
  3. ETOPOSIDE [Suspect]
     Active Substance: ETOPOSIDE
     Dates: end: 20220626

REACTIONS (1)
  - Febrile neutropenia [None]

NARRATIVE: CASE EVENT DATE: 20220701
